FAERS Safety Report 13381590 (Version 1)
Quarter: 2017Q1

REPORT INFORMATION
  Report Type: Spontaneous
  Country: US (occurrence: US)
  Receive Date: 20170329
  Receipt Date: 20170329
  Transmission Date: 20170429
  Serious: No
  Sender: FDA-Public Use
  Company Number: US-CELGENEUS-USA-2017037380

PATIENT
  Sex: Male

DRUGS (1)
  1. REVLIMID [Suspect]
     Active Substance: LENALIDOMIDE
     Indication: PLASMA CELL MYELOMA
     Dosage: 10 MILLIGRAM
     Route: 048
     Dates: start: 20170119

REACTIONS (7)
  - Insomnia [Unknown]
  - Abdominal pain upper [Unknown]
  - Chromaturia [Unknown]
  - Constipation [Unknown]
  - Nausea [Unknown]
  - Pruritus [Unknown]
  - Pain [Unknown]
